FAERS Safety Report 19444992 (Version 2)
Quarter: 2021Q3

REPORT INFORMATION
  Report Type: Spontaneous
  Country: US (occurrence: US)
  Receive Date: 20210622
  Receipt Date: 20210823
  Transmission Date: 20211014
  Serious: Yes (Other)
  Sender: FDA-Public Use
  Company Number: US-JNJFOC-20210636223

PATIENT
  Age: 70 Year
  Sex: Female

DRUGS (22)
  1. ELMIRON [Suspect]
     Active Substance: PENTOSAN POLYSULFATE SODIUM
     Route: 048
     Dates: end: 202003
  2. CEPHALEXINE [Concomitant]
     Active Substance: CEPHALEXIN
     Indication: INFECTION
     Dates: start: 20140101, end: 20210101
  3. OMEPRAZOLE. [Concomitant]
     Active Substance: OMEPRAZOLE
     Indication: CHOLECYSTECTOMY
     Dates: start: 20190101, end: 20210101
  4. TRAMADOL. [Concomitant]
     Active Substance: TRAMADOL
     Dosage: 1 TABLET BY MOUTH EVERY 4 TO 6 HOURS AS NEEDED
     Dates: start: 20130101, end: 20210101
  5. ELMIRON [Suspect]
     Active Substance: PENTOSAN POLYSULFATE SODIUM
     Indication: CYSTITIS INTERSTITIAL
     Route: 048
     Dates: start: 2005
  6. ELMIRON [Suspect]
     Active Substance: PENTOSAN POLYSULFATE SODIUM
     Route: 048
     Dates: start: 20071101, end: 200902
  7. ELMIRON [Suspect]
     Active Substance: PENTOSAN POLYSULFATE SODIUM
     Route: 048
     Dates: start: 200902
  8. METHENAMINE MANDELATE. [Concomitant]
     Active Substance: METHENAMINE MANDELATE
     Indication: CYSTITIS INTERSTITIAL
     Route: 048
     Dates: start: 20190101, end: 20200101
  9. TAMSULOSIN [Concomitant]
     Active Substance: TAMSULOSIN
     Indication: BLADDER SPASM
     Dates: start: 20150101
  10. ELMIRON [Suspect]
     Active Substance: PENTOSAN POLYSULFATE SODIUM
     Route: 048
     Dates: start: 201510, end: 201610
  11. ELMIRON [Suspect]
     Active Substance: PENTOSAN POLYSULFATE SODIUM
     Route: 048
     Dates: end: 20200729
  12. GABAPENTIN. [Concomitant]
     Active Substance: GABAPENTIN
     Indication: SLEEP DISORDER
     Dosage: 1 CAPSULE BY MOUTH 2 TO 3 TIMES DAILY
     Dates: start: 20060101
  13. TRIMETHOPRIM SULFAMETHOXAZOLE [Concomitant]
     Active Substance: SULFAMETHOXAZOLE\TRIMETHOPRIM
     Indication: INFECTION
     Dosage: 800? 160 TAB,
     Dates: start: 20150101, end: 20210101
  14. HYDROXYZINE HCL [Concomitant]
     Active Substance: HYDROXYZINE HYDROCHLORIDE
     Dosage: 1 TABLET BY MOUTH 3 TO 4 TIMES DAILY AS NEEDED FOR ITCHING
     Dates: start: 20190101, end: 20191231
  15. DICLOFENAC [Concomitant]
     Active Substance: DICLOFENAC
     Indication: ARTHRALGIA
     Dates: start: 20190101, end: 20210101
  16. NITROFURANTOIN. [Concomitant]
     Active Substance: NITROFURANTOIN
     Indication: INFECTION
     Dates: start: 20110101, end: 20200101
  17. CEFDINIR. [Concomitant]
     Active Substance: CEFDINIR
     Indication: INFECTION
     Dates: start: 20140101, end: 20200101
  18. FAMOTIDINE. [Concomitant]
     Active Substance: FAMOTIDINE
     Dates: start: 20190101, end: 20191231
  19. ELMIRON [Suspect]
     Active Substance: PENTOSAN POLYSULFATE SODIUM
     Route: 048
     Dates: start: 20110304, end: 20181019
  20. LEVOFLOXACIN. [Concomitant]
     Active Substance: LEVOFLOXACIN
     Indication: INFECTION
     Dates: start: 20150101, end: 20200101
  21. ELMIRON [Suspect]
     Active Substance: PENTOSAN POLYSULFATE SODIUM
     Route: 048
     Dates: start: 200902, end: 201011
  22. PREDNISONE. [Concomitant]
     Active Substance: PREDNISONE
     Dosage: 20 MG TAB, 3 TABLETS ONCE DAILY FOR 3 DAYS, 2 TABS FOR 3 DAYS, 1 TAB FOR 3 DAYS, 1/2 TAB FOR 4 DAYS
     Dates: start: 20190101, end: 20191231

REACTIONS (2)
  - Frustration tolerance decreased [Unknown]
  - Dry age-related macular degeneration [Not Recovered/Not Resolved]

NARRATIVE: CASE EVENT DATE: 20191219
